FAERS Safety Report 7955442-4 (Version None)
Quarter: 2011Q4

REPORT INFORMATION
  Report Type: 
  Country: None (occurrence: None)
  Receive Date: 20111202
  Receipt Date: 20111122
  Transmission Date: 20120403
  Serious: Yes (Other)
  Sender: FDA-Public Use
  Company Number: CN-ASTRAZENECA-2011SE70993

PATIENT
  Sex: Female

DRUGS (5)
  1. KETAMINE HCL [Suspect]
     Indication: ANAESTHESIA PROCEDURE
     Route: 042
  2. PROPOFOL [Suspect]
     Indication: ANAESTHESIA PROCEDURE
     Dosage: 1.6-2MG/KG
     Route: 042
  3. FENTANYL [Suspect]
     Indication: ANAESTHESIA PROCEDURE
     Dosage: 1-1.5UG/KG
     Route: 042
  4. PHENOBARBITAL TAB [Suspect]
     Indication: ANAESTHESIA PROCEDURE
     Dosage: 0.1G
     Route: 030
  5. ATROPINE [Suspect]
     Indication: ANAESTHESIA PROCEDURE
     Dosage: 0.5MG
     Route: 030

REACTIONS (1)
  - RESPIRATORY DEPRESSION [None]
